FAERS Safety Report 15331843 (Version 1)
Quarter: 2018Q3

REPORT INFORMATION
  Report Type: Spontaneous
  Country: US (occurrence: US)
  Receive Date: 20180824
  Receipt Date: 20180824
  Transmission Date: 20181010
  Serious: No
  Sender: FDA-Public Use
  Company Number: None

PATIENT
  Sex: Male
  Weight: 65.32 kg

DRUGS (3)
  1. FORTEO [Suspect]
     Active Substance: TERIPARATIDE
     Indication: SENILE OSTEOPOROSIS
     Route: 058
     Dates: start: 201803
  2. FORTEO [Suspect]
     Active Substance: TERIPARATIDE
     Indication: ARTERIOSCLEROSIS
     Route: 058
     Dates: start: 201803
  3. FORTEO [Suspect]
     Active Substance: TERIPARATIDE
     Indication: TYPE V HYPERLIPIDAEMIA
     Route: 058
     Dates: start: 201803

REACTIONS (1)
  - Myocardial infarction [None]
